FAERS Safety Report 14895175 (Version 3)
Quarter: 2018Q2

REPORT INFORMATION
  Report Type: Spontaneous
  Country: US (occurrence: US)
  Receive Date: 20180515
  Receipt Date: 20180620
  Transmission Date: 20180711
  Serious: No
  Sender: FDA-Public Use
  Company Number: US-PFIZER INC-2018195028

PATIENT
  Age: 73 Year
  Sex: Female
  Weight: 78.91 kg

DRUGS (3)
  1. GABAPENTIN. [Suspect]
     Active Substance: GABAPENTIN
     Indication: NEUROPATHY PERIPHERAL
     Dosage: 2700 MG, 1X/DAY
  2. IBRANCE [Concomitant]
     Active Substance: PALBOCICLIB
     Dosage: UNK
  3. GABAPENTIN. [Suspect]
     Active Substance: GABAPENTIN
     Indication: NEURALGIA
     Dosage: 3600 MG, UNK

REACTIONS (2)
  - Drug effective for unapproved indication [Unknown]
  - Fatigue [Recovering/Resolving]
